FAERS Safety Report 10542208 (Version 1)
Quarter: 2014Q4

REPORT INFORMATION
  Report Type: Spontaneous
  Country: VE (occurrence: VE)
  Receive Date: 20141024
  Receipt Date: 20141024
  Transmission Date: 20150529
  Serious: Yes (Hospitalization, Other)
  Sender: FDA-Public Use
  Company Number: PHHY2014VE139155

PATIENT
  Sex: Female

DRUGS (5)
  1. FORADIL [Suspect]
     Active Substance: FORMOTEROL FUMARATE
     Indication: PRODUCT USED FOR UNKNOWN INDICATION
     Dosage: 24 UG, QD (AT BREAKFAST)
     Route: 055
  2. SALBUTAMOL [Concomitant]
     Active Substance: ALBUTEROL
     Indication: INFECTION
     Dosage: 25 MG, Q12H
     Route: 065
  3. MONTELUKAST [Concomitant]
     Active Substance: MONTELUKAST SODIUM
     Indication: PRODUCT USED FOR UNKNOWN INDICATION
     Dosage: 10 MG, QD
     Route: 065
  4. MIFLONIDE [Suspect]
     Active Substance: BUDESONIDE
     Indication: PRODUCT USED FOR UNKNOWN INDICATION
     Dosage: 800 UG, QD (AT BREAKFAST)
     Route: 055
  5. VIAGRA [Concomitant]
     Active Substance: SILDENAFIL CITRATE
     Indication: CARDIAC DISORDER
     Dosage: 25 MG, Q8H
     Route: 065

REACTIONS (7)
  - Seizure [Unknown]
  - Fatigue [Unknown]
  - Respiratory tract congestion [Unknown]
  - Expired product administered [Unknown]
  - Asthma [Unknown]
  - Hypokinesia [Unknown]
  - Tremor [Unknown]
